FAERS Safety Report 22941233 (Version 2)
Quarter: 2023Q4

REPORT INFORMATION
  Report Type: Report from Study
  Country: DE (occurrence: DE)
  Receive Date: 20230913
  Receipt Date: 20231106
  Transmission Date: 20240110
  Serious: Yes (Hospitalization)
  Sender: FDA-Public Use
  Company Number: DE-BIOGEN-2023BI01225512

PATIENT
  Age: 40 Year
  Sex: Female
  Weight: 72 kg

DRUGS (3)
  1. TYSABRI [Suspect]
     Active Substance: NATALIZUMAB
     Indication: Multiple sclerosis
     Route: 050
     Dates: start: 20230426
  2. TYSABRI [Suspect]
     Active Substance: NATALIZUMAB
     Route: 050
  3. LEVODOPA [Concomitant]
     Active Substance: LEVODOPA
     Indication: Restless legs syndrome
     Dosage: RESTLESS-LEGS SYNDROME (STARTED IN 2008, TREATED WITH LEVODOPA ORAL 100MG AS NEEDED).
     Route: 050
     Dates: start: 2008

REACTIONS (1)
  - Multiple sclerosis relapse [Recovered/Resolved with Sequelae]

NARRATIVE: CASE EVENT DATE: 20230717
